FAERS Safety Report 20058128 (Version 1)
Quarter: 2021Q4

REPORT INFORMATION
  Report Type: Spontaneous
  Country: ES (occurrence: ES)
  Receive Date: 20211111
  Receipt Date: 20211111
  Transmission Date: 20220303
  Serious: Yes (Life-Threatening)
  Sender: FDA-Public Use
  Company Number: None

PATIENT
  Age: 78 Year
  Sex: Female

DRUGS (11)
  1. AZITHROMYCIN [Suspect]
     Active Substance: AZITHROMYCIN
     Indication: Infection
     Dosage: COMP C/24 H
     Route: 048
     Dates: start: 20211004
  2. PROLIA [Concomitant]
     Active Substance: DENOSUMAB
     Indication: Osteoporosis
     Dosage: 60.0 MG , 1 PRE-FILLED SYRINGE OF 1 ML
     Route: 058
     Dates: start: 20150911
  3. FUROSEMIDE [Concomitant]
     Active Substance: FUROSEMIDE
     Indication: Atrial fibrillation
     Dosage: 40.0 MG A-DE , 30 TABLETS
     Route: 048
     Dates: start: 20201218
  4. TRELEGY ELLIPTA [Concomitant]
     Active Substance: FLUTICASONE FUROATE\UMECLIDINIUM BROMIDE\VILANTEROL TRIFENATATE
     Indication: Asthma
     Dosage: 1.0 PUFF C/24 H ,1 INHALER OF 30 DOSES , STRENGTH : 92MCG/55MCG/22MCG
     Route: 050
     Dates: start: 20210515
  5. LEVOTHYROXINE SODIUM [Concomitant]
     Active Substance: LEVOTHYROXINE SODIUM
     Indication: Hypothyroidism
     Dosage: 125.0 MCG A-DE , 100 TABLETS
     Route: 048
     Dates: start: 20200904
  6. PLAVIX [Concomitant]
     Active Substance: CLOPIDOGREL BISULFATE
     Indication: Atrial fibrillation
     Dosage: 75.0 MG DE , 84 TABLETS
     Route: 048
     Dates: start: 20210626
  7. LORAZEPAM [Concomitant]
     Active Substance: LORAZEPAM
     Indication: Insomnia
     Dosage: 1 MILLIGRAM DAILY;  NIGHT, 50 TABLETS
     Route: 048
     Dates: start: 20150723
  8. PANTOPRAZOL CINFA [Concomitant]
     Indication: Dyspepsia
     Dosage: 40.0 MG DE , 56 TABLETS (BLISTER)
     Route: 048
     Dates: start: 20200904
  9. CHOLECALCIFEROL [Concomitant]
     Active Substance: CHOLECALCIFEROL
     Indication: Vitamin D deficiency
     Dosage: 25000.0 UI C / 30 DAYS , STRENGTH : 25,000 IU / 2.5 ML , 4 VIALS OF 2.5 ML
     Route: 048
     Dates: start: 20210218
  10. BUPRENORPHINE [Concomitant]
     Active Substance: BUPRENORPHINE
     Indication: Spinal osteoarthritis
     Dosage: 1.0 PATCH C / 72 HOURS ,  STRENGTH : 52.5 MICROGRAMS / HOUR  , 10 PATCHES
     Dates: start: 20210226
  11. ATENOLOL CINFA [Concomitant]
     Indication: Spinal osteoarthritis
     Dosage: MG IRREGULAR , 60 TABLETS
     Route: 048
     Dates: start: 20200904

REACTIONS (1)
  - Anaphylactic shock [Recovered/Resolved with Sequelae]

NARRATIVE: CASE EVENT DATE: 20211004
